FAERS Safety Report 6814156-4 (Version None)
Quarter: 2010Q3

REPORT INFORMATION
  Report Type: 
  Country: None (occurrence: None)
  Receive Date: 20100702
  Receipt Date: 20100604
  Transmission Date: 20110219
  Serious: No
  Sender: FDA-Public Use
  Company Number: A0863074A

PATIENT
  Age: 47 Year
  Sex: Male

DRUGS (2)
  1. ADVAIR DISKUS 100/50 [Suspect]
     Indication: PRODUCT USED FOR UNKNOWN INDICATION
     Dosage: 2PUFF TWICE PER DAY
     Route: 065
     Dates: start: 20100526
  2. NO CONCURRENT MEDICATION [Concomitant]

REACTIONS (2)
  - FOREIGN BODY [None]
  - PRODUCT QUALITY ISSUE [None]
